FAERS Safety Report 7436759-9 (Version None)
Quarter: 2011Q2

REPORT INFORMATION
  Report Type: 
  Country: None (occurrence: None)
  Receive Date: 20110426
  Receipt Date: 20110419
  Transmission Date: 20111010
  Serious: Yes (Death)
  Sender: FDA-Public Use
  Company Number: MX-SANOFI-AVENTIS-2011SA024449

PATIENT
  Age: 62 Year
  Sex: Male
  Weight: 68 kg

DRUGS (2)
  1. ALFUZOSIN HYDROCHLORIDE [Suspect]
     Indication: URINARY INCONTINENCE
     Route: 048
     Dates: start: 20080101, end: 20100201
  2. COAPROVEL [Suspect]
     Route: 048
     Dates: end: 20100201

REACTIONS (2)
  - DEATH [None]
  - MEDICATION ERROR [None]
